FAERS Safety Report 7582681-7 (Version None)
Quarter: 2011Q2

REPORT INFORMATION
  Report Type: 
  Country: None (occurrence: None)
  Receive Date: 20110630
  Receipt Date: 20110627
  Transmission Date: 20111010
  Serious: No
  Sender: FDA-Public Use
  Company Number: US-PFIZER INC-2010155627

PATIENT
  Sex: Female

DRUGS (1)
  1. XALATAN [Suspect]
     Dosage: UNK

REACTIONS (4)
  - EYE DISORDER [None]
  - OCULAR HYPERAEMIA [None]
  - ASTHENOPIA [None]
  - GROWTH OF EYELASHES [None]
